FAERS Safety Report 4650463-1 (Version None)
Quarter: 2005Q2

REPORT INFORMATION
  Report Type: 
  Country: None (occurrence: None)
  Receive Date: 20050429
  Receipt Date: 20050303
  Transmission Date: 20051028
  Serious: Yes (Death, Life-Threatening, Hospitalization)
  Sender: FDA-Public Use
  Company Number: 2005-03-0125

PATIENT
  Age: 56 Year
  Sex: Male

DRUGS (4)
  1. PEG-INTRON [Suspect]
     Indication: HEPATITIS C
     Dosage: 100 MCG QW
     Dates: start: 20040823, end: 20050301
  2. RIBAVIRIN [Suspect]
     Indication: HEPATITIS C
     Dosage: 1000-600 MG ORAL; 1000 MG QD ORAL; 600 MG QD ORAL
     Route: 048
     Dates: start: 20040823, end: 20050131
  3. RIBAVIRIN [Suspect]
     Indication: HEPATITIS C
     Dosage: 1000-600 MG ORAL; 1000 MG QD ORAL; 600 MG QD ORAL
     Route: 048
     Dates: start: 20040823, end: 20050302
  4. RIBAVIRIN [Suspect]
     Indication: HEPATITIS C
     Dosage: 1000-600 MG ORAL; 1000 MG QD ORAL; 600 MG QD ORAL
     Route: 048
     Dates: start: 20050214, end: 20050302

REACTIONS (3)
  - ACUTE MYOCARDIAL INFARCTION [None]
  - ANAEMIA [None]
  - TREATMENT NONCOMPLIANCE [None]
